FAERS Safety Report 5310766-4 (Version None)
Quarter: 2007Q2

REPORT INFORMATION
  Report Type: 
  Country: None (occurrence: None)
  Receive Date: 20070428
  Receipt Date: 20070416
  Transmission Date: 20071010
  Serious: Yes (Hospitalization)
  Sender: FDA-Public Use
  Company Number: US-PFIZER INC-2007025701

PATIENT
  Sex: Male
  Weight: 73.5 kg

DRUGS (4)
  1. SU-011,248 [Suspect]
     Indication: GASTROINTESTINAL STROMAL TUMOUR
     Route: 048
     Dates: start: 20060202, end: 20070327
  2. SU-011,248 [Suspect]
     Route: 048
  3. ENALAPRIL MALEATE [Concomitant]
     Route: 048
     Dates: start: 20060720, end: 20070315
  4. PRINZIDE [Concomitant]
     Dosage: TEXT:20/25MG-FREQ:PRN AS NEEDED
     Route: 048
     Dates: start: 20060314, end: 20070315

REACTIONS (1)
  - HYPOGLYCAEMIA [None]
